FAERS Safety Report 6687581-2 (Version None)
Quarter: 2010Q2

REPORT INFORMATION
  Report Type: 
  Country: None (occurrence: None)
  Receive Date: 20100416
  Receipt Date: 20100416
  Transmission Date: 20101027
  Serious: Yes (Other)
  Sender: FDA-Public Use
  Company Number: None

PATIENT
  Age: 67 Year
  Sex: Male
  Weight: 99.7913 kg

DRUGS (2)
  1. CIPRO [Suspect]
     Indication: PROCEDURAL COMPLICATION
     Dosage: TWICE DAILY INTRAVENOUS
     Dates: start: 20090401, end: 20090629
  2. CIPRO [Suspect]
     Indication: STAPHYLOCOCCAL INFECTION
     Dosage: TWICE DAILY INTRAVENOUS
     Dates: start: 20090401, end: 20090629

REACTIONS (3)
  - HEADACHE [None]
  - NECK PAIN [None]
  - NEURALGIA [None]
